FAERS Safety Report 23024382 (Version 3)
Quarter: 2024Q1

REPORT INFORMATION
  Report Type: Spontaneous
  Country: ES (occurrence: ES)
  Receive Date: 20231004
  Receipt Date: 20240329
  Transmission Date: 20240410
  Serious: Yes (Other)
  Sender: FDA-Public Use
  Company Number: ES-ELI_LILLY_AND_COMPANY-ES202306004488

PATIENT
  Age: 53 Year
  Sex: Female

DRUGS (5)
  1. LETROZOLE [Suspect]
     Active Substance: LETROZOLE
     Indication: Breast cancer metastatic
     Dosage: UNK
     Route: 065
  2. ABEMACICLIB [Suspect]
     Active Substance: ABEMACICLIB
     Indication: Breast cancer metastatic
     Dosage: 150 MILLIGRAM
     Route: 048
     Dates: start: 20230524
  3. ABEMACICLIB [Suspect]
     Active Substance: ABEMACICLIB
     Dosage: 100 MILLIGRAM
     Route: 048
     Dates: start: 20230607
  4. ABEMACICLIB [Suspect]
     Active Substance: ABEMACICLIB
     Dosage: 100 MILLIGRAM
     Route: 065
     Dates: start: 202307
  5. ABEMACICLIB [Suspect]
     Active Substance: ABEMACICLIB
     Dosage: 100 MILLIGRAM
     Route: 065

REACTIONS (15)
  - Choking [Recovering/Resolving]
  - Blood electrolytes decreased [Recovering/Resolving]
  - Diarrhoea [Recovered/Resolved]
  - Fatigue [Recovering/Resolving]
  - Malaise [Unknown]
  - Muscular weakness [Recovering/Resolving]
  - Nausea [Recovering/Resolving]
  - Dizziness [Recovering/Resolving]
  - Blood creatinine increased [Recovering/Resolving]
  - Haematoma [Recovering/Resolving]
  - Abdominal distension [Recovering/Resolving]
  - Spider vein [Recovering/Resolving]
  - Rhinitis [Recovering/Resolving]
  - Fluid intake reduced [Unknown]
  - Platelet count decreased [Recovered/Resolved]

NARRATIVE: CASE EVENT DATE: 20230607
